FAERS Safety Report 8239718-1 (Version None)
Quarter: 2012Q1

REPORT INFORMATION
  Report Type: 
  Country: None (occurrence: None)
  Receive Date: 20120309
  Receipt Date: 20110414
  Transmission Date: 20120608
  Serious: Yes (Hospitalization)
  Sender: FDA-Public Use
  Company Number: PHHY2010US24503

PATIENT
  Age: 45 Year
  Sex: Male

DRUGS (12)
  1. FEXOFENADINE HYDROCHLORIDE [Concomitant]
  2. AMANTADINE HCL [Concomitant]
  3. EXTAVIA [Suspect]
     Indication: MULTIPLE SCLEROSIS
     Dosage: 0.25MG, QOD, SUBCUTANEOUS
     Route: 058
     Dates: start: 20100129
  4. BACLOFEN [Concomitant]
  5. HYDROCHLOROTHIAZIDE [Concomitant]
  6. CYANOCOBALAMIN [Concomitant]
  7. MAGNESIUM (MAGNESIUM) [Concomitant]
  8. ACETAMINOPHEN [Concomitant]
  9. VITAMIN D [Concomitant]
  10. ASPIRIN [Concomitant]
  11. FISH OIL (FISH OIL) [Concomitant]
  12. MULTIVITAMIN [Concomitant]

REACTIONS (4)
  - MULTIPLE SCLEROSIS RELAPSE [None]
  - PYREXIA [None]
  - CHILLS [None]
  - MUSCLE SPASMS [None]
